FAERS Safety Report 7124273-X (Version None)
Quarter: 2010Q4

REPORT INFORMATION
  Report Type: 
  Country: None (occurrence: None)
  Receive Date: 20101126
  Receipt Date: 20101115
  Transmission Date: 20110411
  Serious: Yes (Other)
  Sender: FDA-Public Use
  Company Number: PHHY2010JP77493

PATIENT
  Age: 56 Year
  Sex: Female

DRUGS (2)
  1. PAMIDRONATE DISODIUM [Suspect]
     Indication: METASTASES TO BONE
     Dosage: UNK
     Dates: start: 20060201, end: 20061101
  2. ZOLEDRONATE [Suspect]
     Indication: METASTASES TO BONE
     Dosage: UNK
     Dates: start: 20061101, end: 20080101

REACTIONS (9)
  - BONE DISORDER [None]
  - FISTULA [None]
  - GINGIVAL PAIN [None]
  - GINGIVAL SWELLING [None]
  - GINGIVAL ULCERATION [None]
  - ORAL DISORDER [None]
  - OSTEONECROSIS OF JAW [None]
  - PATHOLOGICAL FRACTURE [None]
  - SURGERY [None]
